FAERS Safety Report 7002092-2 (Version None)
Quarter: 2010Q3

REPORT INFORMATION
  Report Type: 
  Country: None (occurrence: None)
  Receive Date: 20100920
  Receipt Date: 20100513
  Transmission Date: 20110219
  Serious: No
  Sender: FDA-Public Use
  Company Number: US-ASTRAZENECA-2008UW27401

PATIENT
  Age: 15795 Day
  Sex: Female
  Weight: 81.2 kg

DRUGS (6)
  1. SEROQUEL [Suspect]
     Indication: BIPOLAR DISORDER
     Route: 048
     Dates: start: 20081019
  2. LOTREL [Concomitant]
     Dosage: 10/20 A DAY
     Dates: start: 20080101
  3. DIOVAN [Concomitant]
     Dates: start: 20080101
  4. CLONIDINE [Concomitant]
     Dates: start: 20080101
  5. FUROSEMIDE [Concomitant]
     Dates: start: 20080101
  6. CYCLOBENZAPRINE [Concomitant]
     Dates: start: 20080101

REACTIONS (2)
  - CHRONIC OBSTRUCTIVE PULMONARY DISEASE [None]
  - DIABETES MELLITUS [None]
